FAERS Safety Report 8519530-6 (Version None)
Quarter: 2012Q3

REPORT INFORMATION
  Report Type: 
  Country: None (occurrence: None)
  Receive Date: 20120718
  Receipt Date: 20080325
  Transmission Date: 20120928
  Serious: Yes (Other)
  Sender: FDA-Public Use
  Company Number: PHHY2008JP04127

PATIENT
  Age: 37 Year
  Sex: Female

DRUGS (1)
  1. ZADITEN [Suspect]
     Dates: start: 20080201, end: 20080301

REACTIONS (4)
  - HYPOAESTHESIA [None]
  - DEPRESSED LEVEL OF CONSCIOUSNESS [None]
  - SOMNOLENCE [None]
  - FEELING ABNORMAL [None]
